FAERS Safety Report 4625347-5 (Version None)
Quarter: 2005Q2

REPORT INFORMATION
  Report Type: 
  Country: None (occurrence: None)
  Receive Date: 20050401
  Receipt Date: 20050301
  Transmission Date: 20051028
  Serious: Yes (Hospitalization)
  Sender: FDA-Public Use
  Company Number: JP-GLAXOSMITHKLINE-B0373637A

PATIENT
  Age: 65 Year
  Sex: Female
  Weight: 49 kg

DRUGS (12)
  1. VALTREX [Suspect]
     Indication: HERPES ZOSTER
     Dosage: 1000MG PER DAY
     Route: 048
     Dates: start: 20050223, end: 20050225
  2. LASIX [Concomitant]
     Indication: RENAL FAILURE CHRONIC
     Dosage: 20MG PER DAY
     Route: 048
  3. PRECIPITATED CALCIUM CARBONATE [Concomitant]
     Indication: HYPERPHOSPHATAEMIA
     Dosage: 1500MG PER DAY
     Route: 048
  4. HALCION [Concomitant]
     Indication: INSOMNIA
     Dosage: .375MG PER DAY
     Route: 048
  5. ALOSENN [Concomitant]
     Indication: CONSTIPATION
     Dosage: .75G PER DAY
     Route: 048
  6. ARGAMATE [Concomitant]
     Indication: HYPERKALAEMIA
     Dosage: 50G PER DAY
     Route: 048
  7. ZYRTEC [Concomitant]
     Indication: RHINITIS ALLERGIC
     Dosage: 10MG PER DAY
     Route: 048
  8. RISUMIC [Concomitant]
     Indication: HYPOTENSION
     Dosage: 5MG PER DAY
     Route: 048
  9. TAMIFLU [Concomitant]
     Indication: INFLUENZA
     Dosage: 75MG PER DAY
     Route: 048
     Dates: start: 20050215, end: 20050215
  10. THREENOFEN [Concomitant]
     Indication: PHARYNGITIS
     Dosage: 60MG PER DAY
     Route: 048
     Dates: start: 20050215
  11. PL [Concomitant]
     Indication: NASOPHARYNGITIS
     Dosage: 3G PER DAY
     Route: 048
     Dates: start: 20050215
  12. ASTOMIN [Concomitant]
     Indication: UPPER RESPIRATORY TRACT INFECTION
     Route: 048
     Dates: start: 20050215

REACTIONS (4)
  - ENCEPHALOPATHY [None]
  - GAIT DISTURBANCE [None]
  - LOGORRHOEA [None]
  - MEMORY IMPAIRMENT [None]
